FAERS Safety Report 14187475 (Version 1)
Quarter: 2017Q4

REPORT INFORMATION
  Report Type: Spontaneous
  Country: US (occurrence: US)
  Receive Date: 20171113
  Receipt Date: 20171113
  Transmission Date: 20180321
  Serious: No
  Sender: FDA-Public Use
  Company Number: None

PATIENT
  Age: 52 Year
  Sex: Female
  Weight: 63.45 kg

DRUGS (15)
  1. EB-C3 RX SUPPLEMENT [Concomitant]
  2. FIBER GUMMIES [Concomitant]
  3. LUNESTA [Concomitant]
     Active Substance: ESZOPICLONE
  4. CYTOMEL [Concomitant]
     Active Substance: LIOTHYRONINE SODIUM
  5. BUPROPION XL [Concomitant]
     Active Substance: BUPROPION
  6. OMEPRAZOLE. [Concomitant]
     Active Substance: OMEPRAZOLE
  7. RHINOCORT [Concomitant]
     Active Substance: BUDESONIDE
  8. ESCITALOPRAM [Concomitant]
     Active Substance: ESCITALOPRAM OXALATE
  9. ALVESCO [Concomitant]
     Active Substance: CICLESONIDE
  10. PRO AIR INHALER [Concomitant]
  11. SENSODYNE REPAIR AND PROTECT WHITENING [Suspect]
     Active Substance: STANNOUS FLUORIDE
     Dosage: OTHER ROUTE:USE ON TOOTHBRUSH TO CLEAN MOUTH?
     Dates: start: 20170915, end: 20171107
  12. SYNTHROID [Concomitant]
     Active Substance: LEVOTHYROXINE SODIUM
  13. FISH OIL [Concomitant]
     Active Substance: FISH OIL
  14. CYCLOBENZAPRINE. [Concomitant]
     Active Substance: CYCLOBENZAPRINE
  15. PROGESTERONE. [Concomitant]
     Active Substance: PROGESTERONE

REACTIONS (2)
  - Tongue ulceration [None]
  - Cheilitis [None]

NARRATIVE: CASE EVENT DATE: 20171106
